FAERS Safety Report 13663993 (Version 2)
Quarter: 2018Q2

REPORT INFORMATION
  Report Type: Spontaneous
  Country: IT (occurrence: IT)
  Receive Date: 20170619
  Receipt Date: 20180523
  Transmission Date: 20180711
  Serious: Yes (Death)
  Sender: FDA-Public Use
  Company Number: IT-TEVA-774078ACC

PATIENT
  Age: 76 Year
  Sex: Female
  Weight: 155 kg

DRUGS (3)
  1. AZITHROMYCIN ANHYDROUS. [Suspect]
     Active Substance: AZITHROMYCIN ANHYDROUS
     Indication: LUNG DISORDER
     Route: 048
     Dates: start: 20170302, end: 20170503
  2. DELTACORTENE - 25 MG COMPRESSE [Concomitant]
     Indication: LUNG DISORDER
     Route: 048
  3. OXYGEN. [Concomitant]
     Active Substance: OXYGEN
     Indication: CHRONIC RESPIRATORY FAILURE
     Route: 055

REACTIONS (3)
  - Cholelithiasis [Fatal]
  - Hepatic enzyme increased [Fatal]
  - Jaundice [Fatal]

NARRATIVE: CASE EVENT DATE: 20170507
